FAERS Safety Report 4953780-0 (Version None)
Quarter: 2006Q1

REPORT INFORMATION
  Report Type: 
  Country: None (occurrence: None)
  Receive Date: 20060327
  Receipt Date: 20060315
  Transmission Date: 20060701
  Serious: Yes (Hospitalization, Other)
  Sender: FDA-Public Use
  Company Number: NSADSS2002000248

PATIENT
  Sex: Female
  Weight: 72 kg

DRUGS (12)
  1. REMICADE [Suspect]
     Route: 041
     Dates: start: 20010307
  2. REMICADE [Suspect]
     Route: 041
     Dates: start: 20010307
  3. REMICADE [Suspect]
     Route: 041
     Dates: start: 20010307
  4. REMICADE [Suspect]
     Indication: RHEUMATOID ARTHRITIS
     Route: 041
     Dates: start: 20010307
  5. PREDNISOLONE [Suspect]
     Indication: RHEUMATOID ARTHRITIS
     Route: 048
  6. METHOTREXATE [Suspect]
     Indication: RHEUMATOID ARTHRITIS
     Route: 030
     Dates: start: 19990301
  7. ANTRA [Concomitant]
     Route: 048
  8. ENALAPRIL MALEATE [Concomitant]
     Indication: HYPERTENSION
     Route: 048
     Dates: start: 20010901
  9. TRAMAL [Concomitant]
     Indication: PAIN
     Route: 048
  10. LEUCOVORIN [Concomitant]
     Route: 048
  11. CYCLOSPORINE [Concomitant]
  12. ARAVA [Concomitant]
     Indication: RHEUMATOID ARTHRITIS

REACTIONS (11)
  - ANAEMIA [None]
  - BACTERIAL INFECTION [None]
  - DYSPHONIA [None]
  - LEUKOCYTOSIS [None]
  - PLEURAL EFFUSION [None]
  - PLEURISY [None]
  - PNEUMOCYSTIS JIROVECI PNEUMONIA [None]
  - PNEUMONIA PNEUMOCOCCAL [None]
  - RESPIRATORY FAILURE [None]
  - RHEUMATOID ARTHRITIS [None]
  - SEPSIS [None]
